FAERS Safety Report 4922697-X (Version None)
Quarter: 2006Q1

REPORT INFORMATION
  Report Type: 
  Country: None (occurrence: None)
  Receive Date: 20060224
  Receipt Date: 20051222
  Transmission Date: 20060701
  Serious: Yes (Disabling)
  Sender: FDA-Public Use
  Company Number: US-MERCK-0512USA03620

PATIENT
  Age: 23 Year
  Sex: Female
  Weight: 64 kg

DRUGS (4)
  1. SINGULAIR [Suspect]
     Indication: ASTHMA
     Route: 048
     Dates: start: 20031001, end: 20051201
  2. CORTICOSTEROIDS (UNSPECIFIED) [Concomitant]
     Route: 055
     Dates: start: 19900101
  3. ALBUTEROL [Concomitant]
     Route: 055
     Dates: start: 19880101
  4. CROMOLYN SODIUM [Concomitant]
     Route: 055
     Dates: start: 19900101

REACTIONS (6)
  - ARTHRALGIA [None]
  - CONTUSION [None]
  - MYALGIA [None]
  - NEUROPATHY [None]
  - PARAESTHESIA [None]
  - WHITE BLOOD CELL COUNT DECREASED [None]
